FAERS Safety Report 10093412 (Version 1)
Quarter: 2014Q2

REPORT INFORMATION
  Report Type: Spontaneous
  Country: US (occurrence: US)
  Receive Date: 20140421
  Receipt Date: 20140421
  Transmission Date: 20141212
  Serious: No
  Sender: FDA-Public Use
  Company Number: US-SA-2013SA126004

PATIENT
  Age: 90 Year
  Sex: Male

DRUGS (3)
  1. ALLEGRA 24 HOUR [Suspect]
     Indication: COUGH
     Route: 048
  2. HYDROCODONE [Concomitant]
  3. METHOCARBAMOL [Concomitant]

REACTIONS (2)
  - Aphagia [Not Recovered/Not Resolved]
  - Nausea [Not Recovered/Not Resolved]
